FAERS Safety Report 4689476-2 (Version None)
Quarter: 2005Q2

REPORT INFORMATION
  Report Type: 
  Country: None (occurrence: None)
  Receive Date: 20050614
  Receipt Date: 20050603
  Transmission Date: 20051028
  Serious: Yes (Other)
  Sender: FDA-Public Use
  Company Number: PHBS2005BE08115

PATIENT
  Age: 81 Year
  Sex: Male

DRUGS (3)
  1. AREDIA [Suspect]
     Indication: MULTIPLE MYELOMA
     Route: 042
  2. ZOMETA [Suspect]
     Indication: MULTIPLE MYELOMA
     Route: 042
  3. MARCOUMAR [Concomitant]
     Route: 065

REACTIONS (13)
  - ACTINOMYCOSIS [None]
  - ASEPTIC NECROSIS BONE [None]
  - DENTAL TREATMENT [None]
  - FISTULA [None]
  - GINGIVITIS [None]
  - OSTEOLYSIS [None]
  - PAIN IN JAW [None]
  - PERIODONTITIS [None]
  - PRIMARY SEQUESTRUM [None]
  - SEQUESTRECTOMY [None]
  - TOOTH ABSCESS [None]
  - TOOTH EXTRACTION [None]
  - WOUND DEBRIDEMENT [None]
